FAERS Safety Report 10271791 (Version 2)
Quarter: 2014Q3

REPORT INFORMATION
  Report Type: Report from Study
  Country: DE (occurrence: DE)
  Receive Date: 20140701
  Receipt Date: 20140701
  Transmission Date: 20150326
  Serious: Yes (Life-Threatening, Hospitalization, Congenital Anomaly, Other)
  Sender: FDA-Public Use
  Company Number: DE-009507513-1008USA03747

PATIENT
  Age: 82 Year
  Sex: Male
  Weight: 82 kg

DRUGS (10)
  1. ASPIRIN. [Concomitant]
     Active Substance: ASPIRIN
     Dosage: 100 MG DAILLY
     Route: 048
     Dates: start: 20090619, end: 20100814
  2. HYDROCHLOROTHIAZIDE. [Concomitant]
     Active Substance: HYDROCHLOROTHIAZIDE
     Dosage: 12.5 MG DAILY
     Route: 048
     Dates: start: 20090609
  3. TAMSU [Concomitant]
     Active Substance: TAMSULOSIN HYDROCHLORIDE
     Dosage: 0.4 MG DAILY
     Dates: start: 20090619
  4. DIOVAN [Concomitant]
     Active Substance: VALSARTAN
     Dosage: TOTAL DAILY DOSE: 80 MG
     Route: 048
     Dates: start: 20090619
  5. EZETIMIBE AND SIMVASTATIN [Suspect]
     Active Substance: EZETIMIBE\SIMVASTATIN
     Indication: ACUTE CORONARY SYNDROME
     Dosage: 10-40 MG, QD
     Route: 048
     Dates: start: 20090619
  6. NEBILET [Concomitant]
     Active Substance: NEBIVOLOL
     Dosage: TOTAL DAILY DOSE: 5 MG
     Route: 048
     Dates: start: 20091014
  7. CO-DIOVAN [Concomitant]
     Active Substance: HYDROCHLOROTHIAZIDE\VALSARTAN
     Dosage: TOTAL DAILY DOSE: 160 MG
     Route: 048
     Dates: start: 20090619
  8. TAMSU [Concomitant]
     Active Substance: TAMSULOSIN HYDROCHLORIDE
     Dosage: TOTAL DAILY DOSE: 0.4 MG
     Route: 048
     Dates: start: 20100619
  9. MARCUMAR [Concomitant]
     Active Substance: PHENPROCOUMON
     Dosage: UNK UNK, PRN
     Route: 048
     Dates: start: 20090718, end: 20100814
  10. PROSCAR [Concomitant]
     Active Substance: FINASTERIDE
     Dosage: 5 MG DAILY
     Route: 048
     Dates: start: 20090619

REACTIONS (4)
  - Prostatic specific antigen increased [Not Recovered/Not Resolved]
  - Adenoma benign [Recovered/Resolved]
  - Gastrointestinal haemorrhage [Recovered/Resolved]
  - Large intestine polyp [Recovered/Resolved]

NARRATIVE: CASE EVENT DATE: 20100819
